FAERS Safety Report 21817585 (Version 1)
Quarter: 2023Q1

REPORT INFORMATION
  Report Type: Spontaneous
  Country: US (occurrence: None)
  Receive Date: 20230104
  Receipt Date: 20230104
  Transmission Date: 20230418
  Serious: Yes (Other)
  Sender: FDA-Public Use
  Company Number: None

PATIENT
  Age: 57 Year
  Sex: Female
  Weight: 70.65 kg

DRUGS (5)
  1. AMOXICILLIN\CLAVULANATE POTASSIUM [Suspect]
     Active Substance: AMOXICILLIN\CLAVULANATE POTASSIUM
     Indication: Sinusitis
     Dosage: OTHER QUANTITY : 1 CAPSULE(S);?FREQUENCY : EVERY 12 HOURS;?
     Route: 048
  2. Levothyroxine .05 mg [Concomitant]
  3. Thyroid Celecoxib (Celebrex)  2 x day  100 mg [Concomitant]
  4. 1 6-28-21 Sertraline 25 mg 1xday [Concomitant]
  5. Multi vitamin Lutein 20 mg [Concomitant]

REACTIONS (9)
  - Vomiting [None]
  - Diarrhoea [None]
  - Hyperhidrosis [None]
  - Hypersensitivity [None]
  - Asthenia [None]
  - Dysstasia [None]
  - Dizziness [None]
  - Weight decreased [None]
  - Brief resolved unexplained event [None]

NARRATIVE: CASE EVENT DATE: 20230103
